FAERS Safety Report 6833530-3 (Version None)
Quarter: 2010Q3

REPORT INFORMATION
  Report Type: 
  Country: None (occurrence: None)
  Receive Date: 20100712
  Receipt Date: 20070327
  Transmission Date: 20110219
  Serious: No
  Sender: FDA-Public Use
  Company Number: US-PFIZER INC-2007026160

PATIENT
  Sex: Female
  Weight: 63.5 kg

DRUGS (3)
  1. CHANTIX [Suspect]
     Indication: SMOKING CESSATION THERAPY
  2. LEXAPRO [Concomitant]
  3. VALSARTAN [Concomitant]
     Indication: HYPERTENSION

REACTIONS (3)
  - DYSGEUSIA [None]
  - FLATULENCE [None]
  - SOMNOLENCE [None]
